FAERS Safety Report 11825975 (Version 1)
Quarter: 2015Q4

REPORT INFORMATION
  Report Type: Report from Study
  Country: DE (occurrence: DE)
  Receive Date: 20151211
  Receipt Date: 20151211
  Transmission Date: 20160305
  Serious: Yes (Hospitalization)
  Sender: FDA-Public Use
  Company Number: DE-ACTELION-A-CH2015-125934

PATIENT
  Age: 50 Year
  Sex: Female
  Weight: 76 kg

DRUGS (9)
  1. MAGNESIUM VERLA [Concomitant]
     Active Substance: MAGNESIUM
  2. REVATIO [Concomitant]
     Active Substance: SILDENAFIL CITRATE
     Dosage: 20 MG, UNK
     Dates: end: 20151110
  3. MACITENTAN [Suspect]
     Active Substance: MACITENTAN
     Indication: PORTOPULMONARY HYPERTENSION
     Dosage: 10 MG, QD
     Route: 048
     Dates: start: 20150814, end: 20150918
  4. TOREM [Concomitant]
     Active Substance: TORSEMIDE
     Dosage: 20 MG, UNK
  5. IODIDE [Concomitant]
     Dosage: 200 ?G, UNK
  6. PANTOPRAZOLE SODIUM. [Concomitant]
     Active Substance: PANTOPRAZOLE SODIUM
     Dosage: 40 MG, UNK
  7. ALDACTONE [Concomitant]
     Active Substance: SPIRONOLACTONE
     Dosage: 50 MG, UNK
  8. PROCORALAN [Concomitant]
     Active Substance: IVABRADINE
     Dosage: UNK
  9. KALINOR RETARD P [Concomitant]

REACTIONS (10)
  - Acute hepatic failure [Recovered/Resolved with Sequelae]
  - Encephalopathy [Recovering/Resolving]
  - Varices oesophageal [Unknown]
  - Rectal polyp [Unknown]
  - Ascites [Recovered/Resolved with Sequelae]
  - Platelet count decreased [Recovered/Resolved with Sequelae]
  - Weight increased [Recovered/Resolved with Sequelae]
  - Abdominal cavity drainage [Recovered/Resolved with Sequelae]
  - Ammonia increased [Recovering/Resolving]
  - Oesophageal variceal ligation [Unknown]

NARRATIVE: CASE EVENT DATE: 20151017
